FAERS Safety Report 7792006-X (Version None)
Quarter: 2011Q3

REPORT INFORMATION
  Report Type: 
  Country: None (occurrence: None)
  Receive Date: 20110929
  Receipt Date: 20110920
  Transmission Date: 20111222
  Serious: Yes (Other)
  Sender: FDA-Public Use
  Company Number: 2010004778

PATIENT
  Age: 81 Year
  Sex: Female

DRUGS (2)
  1. TARCEVA [Suspect]
     Indication: LUNG CARCINOMA CELL TYPE UNSPECIFIED STAGE 0
     Dosage: 150 MG, UID/QD, ORAL   100 MG, UID/QD, ORAL   50 MG, UID/QD, ORAL
     Route: 048
     Dates: start: 20101014
  2. TARCEVA [Suspect]
     Indication: LUNG CARCINOMA CELL TYPE UNSPECIFIED STAGE 0
     Dosage: 150 MG, UID/QD, ORAL   100 MG, UID/QD, ORAL   50 MG, UID/QD, ORAL
     Route: 048
     Dates: start: 20100411

REACTIONS (10)
  - SKIN HAEMORRHAGE [None]
  - NAIL BED DISORDER [None]
  - RASH [None]
  - PRURITUS [None]
  - INCISION SITE INFECTION [None]
  - SKIN ULCER [None]
  - ERYTHEMA [None]
  - DRY SKIN [None]
  - CARDIAC PACEMAKER INSERTION [None]
  - DYSURIA [None]
